FAERS Safety Report 18258268 (Version 1)
Quarter: 2020Q3

REPORT INFORMATION
  Report Type: Spontaneous
  Country: DE (occurrence: DE)
  Receive Date: 20200911
  Receipt Date: 20200911
  Transmission Date: 20201103
  Serious: Yes (Other)
  Sender: FDA-Public Use
  Company Number: DE-BAYER-2020-183955

PATIENT
  Sex: Male
  Weight: 2.2 kg

DRUGS (1)
  1. JAYDESS [Suspect]
     Active Substance: LEVONORGESTREL
     Indication: CONTRACEPTION
     Dosage: 14 ?G PER DAY CONTINUOUSLY
     Route: 015
     Dates: start: 2018, end: 20200325

REACTIONS (3)
  - Low birth weight baby [None]
  - Premature baby [None]
  - Foetal exposure during pregnancy [None]
